FAERS Safety Report 7650571-7 (Version None)
Quarter: 2011Q3

REPORT INFORMATION
  Report Type: 
  Country: None (occurrence: None)
  Receive Date: 20110802
  Receipt Date: 20110728
  Transmission Date: 20111222
  Serious: Yes (Death, Other)
  Sender: FDA-Public Use
  Company Number: IT-ABBOTT-11P-083-0728101-00

PATIENT
  Sex: Male

DRUGS (10)
  1. OMEPRAZOLE [Concomitant]
     Indication: PRODUCT USED FOR UNKNOWN INDICATION
     Route: 048
  2. VENTRIN [Concomitant]
     Indication: PRODUCT USED FOR UNKNOWN INDICATION
     Route: 062
  3. LASIX [Concomitant]
     Indication: PRODUCT USED FOR UNKNOWN INDICATION
     Dosage: 20 MG / 2 ML
     Route: 042
  4. REPAGLINIDE [Concomitant]
     Indication: PRODUCT USED FOR UNKNOWN INDICATION
     Route: 048
  5. SPIRIVA [Concomitant]
     Indication: PRODUCT USED FOR UNKNOWN INDICATION
     Route: 048
  6. CLARITHROMYCIN [Suspect]
     Indication: BRONCHOPNEUMONIA
     Dosage: 500 MG POWDER/ 10 ML, ONCE DAILY
     Route: 042
     Dates: start: 20110511, end: 20110517
  7. ROCEPHIN [Concomitant]
     Indication: BRONCHOPNEUMONIA
     Dosage: 1G POWDER / 3.5 ML
     Route: 042
  8. CLEXANE T [Concomitant]
     Indication: PRODUCT USED FOR UNKNOWN INDICATION
     Dosage: 6000 UI / 0.6 ML SOLUTION
     Route: 058
  9. OPTIRAY 300 [Suspect]
     Indication: COMPUTERISED TOMOGRAM THORAX
     Dosage: TOTAL
     Route: 042
     Dates: start: 20110517, end: 20110517
  10. NORVASC [Concomitant]
     Indication: PRODUCT USED FOR UNKNOWN INDICATION

REACTIONS (6)
  - PULSELESS ELECTRICAL ACTIVITY [None]
  - DYSPNOEA [None]
  - ARRHYTHMIA [None]
  - CARDIO-RESPIRATORY ARREST [None]
  - EYE MOVEMENT DISORDER [None]
  - GAZE PALSY [None]
